FAERS Safety Report 5661967-7 (Version None)
Quarter: 2008Q2

REPORT INFORMATION
  Report Type: 
  Country: None (occurrence: None)
  Receive Date: 20080215
  Receipt Date: 20071015
  Transmission Date: 20081010
  Serious: Yes (Other)
  Sender: FDA-Public Use
  Company Number: WWISSUE-116

PATIENT
  Sex: Female
  Weight: 68.0396 kg

DRUGS (2)
  1. PREDNISONE [Suspect]
     Indication: HYPERSENSITIVITY
     Dosage: 20MG/ORAL
     Route: 048
     Dates: start: 20070926, end: 20071002
  2. ARAPRO [Concomitant]

REACTIONS (1)
  - BLOOD PRESSURE INCREASED [None]
